FAERS Safety Report 4665872-4 (Version None)
Quarter: 2005Q2

REPORT INFORMATION
  Report Type: 
  Country: None (occurrence: None)
  Receive Date: 20050519
  Receipt Date: 20050510
  Transmission Date: 20051028
  Serious: Yes (Death)
  Sender: FDA-Public Use
  Company Number: FR-BRISTOL-MYERS SQUIBB COMPANY-12964417

PATIENT
  Age: 44 Year
  Sex: Male
  Weight: 59 kg

DRUGS (3)
  1. REYATAZ [Suspect]
     Indication: HIV INFECTION
     Dates: start: 20041018
  2. NORVIR [Suspect]
     Indication: HIV INFECTION
     Dates: start: 20041018
  3. VIREAD [Suspect]
     Indication: HIV INFECTION
     Dates: start: 20041018

REACTIONS (1)
  - RUPTURED CEREBRAL ANEURYSM [None]
